FAERS Safety Report 14770542 (Version 2)
Quarter: 2018Q2

REPORT INFORMATION
  Report Type: Report from Study
  Country: None (occurrence: JP)
  Receive Date: 20180417
  Receipt Date: 20180430
  Transmission Date: 20180711
  Serious: Yes (Hospitalization)
  Sender: FDA-Public Use
  Company Number: JP-BAUSCH-BL-2018-010848

PATIENT
  Age: 69 Year
  Sex: Male

DRUGS (7)
  1. LIVACT [Concomitant]
     Active Substance: AMINO ACIDS
     Indication: HYPOPROTEINAEMIA
     Route: 048
     Dates: start: 20170406
  2. GLACTIV [Concomitant]
     Active Substance: SITAGLIPTIN
     Indication: DIABETES MELLITUS
     Route: 048
     Dates: start: 20170406
  3. RIFXIMA [Suspect]
     Active Substance: RIFAXIMIN
     Indication: HYPERAMMONAEMIA
     Route: 048
     Dates: start: 20170410
  4. MIYA-BM [Concomitant]
     Active Substance: CLOSTRIDIUM BUTYRICUM SPORES STRAIN M-55
     Indication: CONSTIPATION
     Route: 048
     Dates: start: 20170406
  5. AZOSEMIDE [Concomitant]
     Active Substance: AZOSEMIDE
     Indication: ASCITES
     Route: 048
     Dates: start: 20170406
  6. SPIRONOLACTONE. [Concomitant]
     Active Substance: SPIRONOLACTONE
     Indication: ASCITES
     Route: 048
     Dates: start: 20170406
  7. ASCATE [Concomitant]
     Indication: HYPOKALAEMIA
     Route: 048
     Dates: start: 20170406

REACTIONS (1)
  - Hepatic encephalopathy [Recovered/Resolved]

NARRATIVE: CASE EVENT DATE: 20170525
